FAERS Safety Report 5678664-4 (Version None)
Quarter: 2008Q1

REPORT INFORMATION
  Report Type: 
  Country: None (occurrence: None)
  Receive Date: 20080320
  Receipt Date: 20080314
  Transmission Date: 20080703
  Serious: Yes (Hospitalization)
  Sender: FDA-Public Use
  Company Number: 2008-00622

PATIENT
  Age: 9 Year
  Sex: Female
  Weight: 47.7 kg

DRUGS (1)
  1. TRELSTAR DEPOT (WITH CLIP'N'JECT) (WATSON LABORATORIES)(TRIPTORELIN PA [Suspect]
     Indication: PRECOCIOUS PUBERTY
     Dosage: 3 MG, 1 IN 28 DAYS, INTRAMUSCULAR
     Route: 030
     Dates: start: 20070901, end: 20080109

REACTIONS (3)
  - DIPLOPIA [None]
  - HEADACHE [None]
  - VISION BLURRED [None]
